FAERS Safety Report 9132368 (Version 3)
Quarter: 2013Q1

REPORT INFORMATION
  Report Type: Spontaneous
  Country: US (occurrence: US)
  Receive Date: 20130107
  Receipt Date: 20130321
  Transmission Date: 20140127
  Serious: Yes (Hospitalization)
  Sender: FDA-Public Use
  Company Number: US-GLAXOSMITHKLINE-A1006919A

PATIENT
  Age: 79 Year
  Sex: Male

DRUGS (10)
  1. ADVAIR [Suspect]
     Indication: CHRONIC OBSTRUCTIVE PULMONARY DISEASE
     Dosage: 1PUFF TWICE PER DAY
     Route: 055
     Dates: start: 20120102
  2. ALBUTEROL [Concomitant]
  3. PREDNISONE [Concomitant]
  4. MULTIVITAMIN [Concomitant]
  5. FISH OIL [Concomitant]
  6. DILTIAZEM [Concomitant]
  7. PRAVASTATIN [Concomitant]
  8. TEKTURNA [Concomitant]
  9. DALIRESP [Concomitant]
  10. BABY ASPIRIN [Concomitant]

REACTIONS (4)
  - Dyspnoea [Recovered/Resolved]
  - Chronic obstructive pulmonary disease [Recovered/Resolved]
  - Underdose [Unknown]
  - Product quality issue [Unknown]
